FAERS Safety Report 21034025 (Version 1)
Quarter: 2022Q3

REPORT INFORMATION
  Report Type: Spontaneous
  Country: US (occurrence: US)
  Receive Date: 20220701
  Receipt Date: 20220701
  Transmission Date: 20221027
  Serious: No
  Sender: FDA-Public Use
  Company Number: US-TARO PHARMACEUTICALS USA INC.-2021TAR00752

PATIENT

DRUGS (4)
  1. NORTRIPTYLINE HYDROCHLORIDE [Suspect]
     Active Substance: NORTRIPTYLINE HYDROCHLORIDE
     Indication: Small fibre neuropathy
     Dosage: 50 MG (2 OF THE 25 MG CAPSULES) IN THE EVENING
     Route: 048
     Dates: start: 202010, end: 202010
  2. NORTRIPTYLINE HYDROCHLORIDE [Suspect]
     Active Substance: NORTRIPTYLINE HYDROCHLORIDE
     Indication: Neuralgia
  3. ONDANSETRON [Concomitant]
     Active Substance: ONDANSETRON
     Indication: Coeliac disease
     Dosage: 8 MG, TID AS NEEDED
     Route: 065
  4. MECLIZINE [Interacting]
     Active Substance: MECLIZINE HYDROCHLORIDE
     Indication: Nausea
     Dosage: 25 MG, TID AS NEEDED
     Route: 065
     Dates: start: 202009

REACTIONS (4)
  - Influenza like illness [Recovered/Resolved]
  - Drug intolerance [Unknown]
  - Product substitution issue [Unknown]
  - Joint stiffness [Recovered/Resolved]

NARRATIVE: CASE EVENT DATE: 20201001
